FAERS Safety Report 22236809 (Version 1)
Quarter: 2023Q2

REPORT INFORMATION
  Report Type: Spontaneous
  Country: US (occurrence: US)
  Receive Date: 20230420
  Receipt Date: 20230420
  Transmission Date: 20230721
  Serious: No
  Sender: FDA-Public Use
  Company Number: US-ALLERGAN-2227631US

PATIENT
  Sex: Female

DRUGS (1)
  1. RESTASIS [Suspect]
     Active Substance: CYCLOSPORINE
     Indication: Cataract operation
     Dosage: 2 GTT, QD
     Route: 047
     Dates: start: 202207, end: 20220815

REACTIONS (2)
  - Off label use [Unknown]
  - Therapy interrupted [Unknown]
